FAERS Safety Report 8064547-1 (Version None)
Quarter: 2012Q1

REPORT INFORMATION
  Report Type: 
  Country: None (occurrence: None)
  Receive Date: 20120123
  Receipt Date: 20120113
  Transmission Date: 20120608
  Serious: Yes (Other)
  Sender: FDA-Public Use
  Company Number: US-ASTRAZENECA-2011SE18028

PATIENT
  Age: 66 Year
  Sex: Female

DRUGS (2)
  1. ARIMIDEX [Suspect]
     Route: 048
  2. BUPROPION HYDROCHLORIDE [Suspect]
     Route: 065

REACTIONS (3)
  - HYPOAESTHESIA [None]
  - FEELING ABNORMAL [None]
  - NEOPLASM MALIGNANT [None]
